FAERS Safety Report 4333606-9 (Version None)
Quarter: 2004Q2

REPORT INFORMATION
  Report Type: 
  Country: None (occurrence: None)
  Receive Date: 20040406
  Receipt Date: 20040103
  Transmission Date: 20050107
  Serious: Yes (Death, Hospitalization)
  Sender: FDA-Public Use
  Company Number: 2004S1000029

PATIENT
  Age: 58 Year
  Sex: Male

DRUGS (1)
  1. CLOZAPINE [Suspect]
     Indication: SCHIZOPHRENIA
     Dosage: 350MG QD, ORAL
     Route: 048

REACTIONS (2)
  - SEPSIS [None]
  - WHITE BLOOD CELL COUNT DECREASED [None]
